FAERS Safety Report 12311819 (Version 2)
Quarter: 2016Q4

REPORT INFORMATION
  Report Type: Spontaneous
  Country: US (occurrence: US)
  Receive Date: 20160427
  Receipt Date: 20161019
  Transmission Date: 20170207
  Serious: No
  Sender: FDA-Public Use
  Company Number: US-ASTRAZENECA-2016SE30030

PATIENT
  Age: 19249 Day
  Sex: Female
  Weight: 59 kg

DRUGS (4)
  1. FAMOTIDINE. [Concomitant]
     Active Substance: FAMOTIDINE
     Indication: GASTROOESOPHAGEAL REFLUX DISEASE
     Route: 048
     Dates: start: 20151209
  2. CRESTOR [Suspect]
     Active Substance: ROSUVASTATIN CALCIUM
     Indication: BLOOD CHOLESTEROL INCREASED
     Route: 048
     Dates: start: 20160129, end: 201602
  3. PREDNISONE. [Concomitant]
     Active Substance: PREDNISONE
     Indication: GOUT
  4. CRESTOR [Suspect]
     Active Substance: ROSUVASTATIN CALCIUM
     Indication: BLOOD CHOLESTEROL INCREASED
     Route: 048
     Dates: start: 20161006

REACTIONS (12)
  - Fat embolism [Unknown]
  - Oedema peripheral [Unknown]
  - Migraine [Unknown]
  - Gout [Not Recovered/Not Resolved]
  - Paraesthesia [Unknown]
  - Dry eye [Unknown]
  - Headache [Unknown]
  - Peripheral swelling [Unknown]
  - Back pain [Not Recovered/Not Resolved]
  - Muscle spasms [Not Recovered/Not Resolved]
  - Malaise [Unknown]
  - Intentional product misuse [Unknown]

NARRATIVE: CASE EVENT DATE: 20160129
